FAERS Safety Report 26058254 (Version 1)
Quarter: 2025Q4

REPORT INFORMATION
  Report Type: Spontaneous
  Country: US (occurrence: US)
  Receive Date: 20251118
  Receipt Date: 20251118
  Transmission Date: 20260118
  Serious: Yes (Other)
  Sender: TEVA
  Company Number: US-TEVA-VS-3392541

PATIENT
  Sex: Female

DRUGS (1)
  1. KARIVA [Suspect]
     Active Substance: DESOGESTREL\ETHINYL ESTRADIOL
     Indication: Contraception
     Route: 048

REACTIONS (1)
  - Autoimmune disorder [Unknown]
